FAERS Safety Report 7578937-4 (Version None)
Quarter: 2011Q2

REPORT INFORMATION
  Report Type: 
  Country: None (occurrence: None)
  Receive Date: 20110628
  Receipt Date: 20110615
  Transmission Date: 20111010
  Serious: Yes (Other)
  Sender: FDA-Public Use
  Company Number: GB-JNJFOC-20110607684

PATIENT
  Age: 25 Year
  Sex: Male
  Weight: 63 kg

DRUGS (7)
  1. INFLIXIMAB, RECOMBINANT [Suspect]
     Indication: CROHN'S DISEASE
     Dosage: DRUG DURATION: 1 DAY
     Route: 042
     Dates: start: 20101101
  2. INFLIXIMAB, RECOMBINANT [Suspect]
     Dosage: DRUG DURATION: 1 DAY
     Route: 042
     Dates: start: 20110526, end: 20110526
  3. AZATHIOPRINE [Concomitant]
     Indication: CROHN'S DISEASE
     Route: 048
     Dates: start: 20101101
  4. INFLIXIMAB, RECOMBINANT [Suspect]
     Dosage: DRUG DURATION: 1 DAY
     Route: 042
     Dates: start: 20110511
  5. PREDNISOLONE [Concomitant]
     Indication: CROHN'S DISEASE
     Route: 048
     Dates: start: 20110501
  6. HYDROCORTISONE [Concomitant]
     Indication: PREMEDICATION
     Route: 042
  7. CHLORPHENIRAMINE MALEATE [Concomitant]
     Indication: PREMEDICATION
     Route: 042

REACTIONS (5)
  - BODY TEMPERATURE INCREASED [None]
  - TACHYCARDIA [None]
  - RESPIRATORY RATE INCREASED [None]
  - FLUSHING [None]
  - SHOCK [None]
